FAERS Safety Report 18697312 (Version 2)
Quarter: 2021Q1

REPORT INFORMATION
  Report Type: Spontaneous
  Country: ES (occurrence: ES)
  Receive Date: 20210104
  Receipt Date: 20210316
  Transmission Date: 20210419
  Serious: Yes (Disabling, Other)
  Sender: FDA-Public Use
  Company Number: ES-PFIZER INC-2020510793

PATIENT
  Age: 55 Year
  Sex: Male
  Weight: 80 kg

DRUGS (2)
  1. CRIZOTINIB [Suspect]
     Active Substance: CRIZOTINIB
     Indication: LUNG ADENOCARCINOMA STAGE IV
     Dosage: UNK
  2. NAPROXENE [NAPROXEN] [Concomitant]
     Active Substance: NAPROXEN
     Indication: PAIN
     Dosage: 550 MG, 2X/DAY (1/12H)
     Route: 048
     Dates: start: 20201021

REACTIONS (3)
  - Spasmodic dysphonia [Recovering/Resolving]
  - Neoplasm progression [Unknown]
  - Deep vein thrombosis [Recovering/Resolving]

NARRATIVE: CASE EVENT DATE: 20201024
